FAERS Safety Report 17080316 (Version 1)
Quarter: 2019Q4

REPORT INFORMATION
  Report Type: Spontaneous
  Country: CN (occurrence: CN)
  Receive Date: 20191127
  Receipt Date: 20191127
  Transmission Date: 20200122
  Serious: Yes (Life-Threatening, Hospitalization)
  Sender: FDA-Public Use
  Company Number: CN-BAXTER-2019BAX023604

PATIENT
  Age: 65 Year
  Sex: Male
  Weight: 49 kg

DRUGS (5)
  1. MEROPENEM. [Concomitant]
     Active Substance: MEROPENEM
     Indication: INFECTION PROPHYLAXIS
     Route: 065
     Dates: start: 201910, end: 201910
  2. STERILE WATER [Suspect]
     Active Substance: WATER
     Indication: MEDICATION DILUTION
     Dosage: FARMAXIN 88 MG + STERILE WATER INJECTION 500 ML
     Route: 040
     Dates: start: 20191014, end: 20191014
  3. 0.9% SODIUM CHLORIDE INJECTION [Suspect]
     Active Substance: SODIUM CHLORIDE
     Indication: MEDICATION DILUTION
     Dosage: ENDOXAN 888 MG + SODIUM CHLORIDE 100 ML
     Route: 041
     Dates: start: 20191014, end: 20191014
  4. ENDOXAN [Suspect]
     Active Substance: CYCLOPHOSPHAMIDE
     Indication: BREAST CANCER
     Dosage: ENDOXAN 888 MG + SODIUM CHLORIDE 100 ML, NEOADJUVANT CHEMOTHERAPY
     Route: 041
     Dates: start: 20191014, end: 20191014
  5. FARMAXIN (EPIRUBICIN HYDROCHLORIDE) [Suspect]
     Active Substance: EPIRUBICIN HYDROCHLORIDE
     Indication: BREAST CANCER
     Dosage: FARMAXIN 88 MG + STERILE WATER INJECTION 500 ML, NEOADJUVANT CHEMOTHERAPY
     Route: 040
     Dates: start: 20191014, end: 20191014

REACTIONS (4)
  - Neutrophil count decreased [Recovered/Resolved]
  - Pyrexia [Recovered/Resolved]
  - White blood cell count decreased [Recovered/Resolved]
  - Blood pressure decreased [Recovered/Resolved]

NARRATIVE: CASE EVENT DATE: 201910
